FAERS Safety Report 6900340-8 (Version None)
Quarter: 2010Q3

REPORT INFORMATION
  Report Type: 
  Country: None (occurrence: None)
  Receive Date: 20100803
  Receipt Date: 20100721
  Transmission Date: 20110219
  Serious: Yes (Other)
  Sender: FDA-Public Use
  Company Number: PHHY2010AT35935

PATIENT
  Sex: Male

DRUGS (6)
  1. GLEEVEC [Suspect]
     Indication: MENINGIOMA
     Dosage: 400 MG, DAILY
     Route: 048
     Dates: start: 20100401, end: 20100512
  2. NEUROTOP [Concomitant]
  3. KEPPRA [Concomitant]
     Dosage: UNK
  4. MIRTABENE [Concomitant]
     Dosage: UNK
  5. CITALOPRAM [Concomitant]
  6. ZANTAC [Concomitant]
     Dosage: UNK

REACTIONS (3)
  - ALANINE AMINOTRANSFERASE INCREASED [None]
  - ASPARTATE AMINOTRANSFERASE INCREASED [None]
  - GAMMA-GLUTAMYLTRANSFERASE INCREASED [None]
